FAERS Safety Report 5266920-3 (Version None)
Quarter: 2007Q1

REPORT INFORMATION
  Report Type: 
  Country: None (occurrence: None)
  Receive Date: 20070316
  Receipt Date: 20070308
  Transmission Date: 20070707
  Serious: Yes (Other)
  Sender: FDA-Public Use
  Company Number: 2007UW04578

PATIENT
  Age: 83 Year
  Sex: Female
  Weight: 56.7 kg

DRUGS (5)
  1. PULMICORT RESPULES [Suspect]
     Indication: CHRONIC OBSTRUCTIVE PULMONARY DISEASE
     Route: 055
     Dates: start: 20061001
  2. SEREVENT [Concomitant]
  3. RESTASIS [Concomitant]
  4. EYE DROPS [Concomitant]
  5. OCIVITE [Concomitant]
     Indication: EYE DISORDER

REACTIONS (2)
  - DYSPHONIA [None]
  - VISUAL ACUITY REDUCED [None]
